FAERS Safety Report 11510268 (Version 1)
Quarter: 2015Q3

REPORT INFORMATION
  Report Type: Spontaneous
  Country: US (occurrence: US)
  Receive Date: 20150915
  Receipt Date: 20150915
  Transmission Date: 20151125
  Serious: No
  Sender: FDA-Public Use
  Company Number: US-JNJFOC-20150314213

PATIENT
  Age: 49 Year
  Sex: Male
  Weight: 95.26 kg

DRUGS (2)
  1. VISINE L.R. [Suspect]
     Active Substance: OXYMETAZOLINE HYDROCHLORIDE
     Indication: OCULAR HYPERAEMIA
     Dosage: 1 DROP EACH
     Route: 047
  2. VISINE L.R. [Suspect]
     Active Substance: OXYMETAZOLINE HYDROCHLORIDE
     Indication: OCULAR HYPERAEMIA
     Dosage: 1 DROP EACH
     Route: 047

REACTIONS (3)
  - Drug ineffective [Unknown]
  - Expired product administered [Unknown]
  - Eye irritation [Recovered/Resolved]
